FAERS Safety Report 7116844-1 (Version None)
Quarter: 2010Q4

REPORT INFORMATION
  Report Type: 
  Country: None (occurrence: None)
  Receive Date: 20101122
  Receipt Date: 20101110
  Transmission Date: 20110411
  Serious: Yes (Hospitalization, Other)
  Sender: FDA-Public Use
  Company Number: US-CELGENEUS-163-21880-10102174

PATIENT
  Sex: Male

DRUGS (4)
  1. REVLIMID [Suspect]
     Route: 048
     Dates: start: 20080201, end: 20080101
  2. REVLIMID [Suspect]
     Route: 048
     Dates: start: 20090701, end: 20091101
  3. REVLIMID [Suspect]
     Route: 048
     Dates: start: 20100128, end: 20100101
  4. REVLIMID [Suspect]
     Route: 048
     Dates: start: 20101026

REACTIONS (3)
  - FATIGUE [None]
  - RENAL FAILURE CHRONIC [None]
  - TOOTH ABSCESS [None]
